FAERS Safety Report 8589558-9 (Version None)
Quarter: 2012Q3

REPORT INFORMATION
  Report Type: 
  Country: None (occurrence: None)
  Receive Date: 20120813
  Receipt Date: 20120809
  Transmission Date: 20120928
  Serious: Yes (Hospitalization, Other)
  Sender: FDA-Public Use
  Company Number: CA-ROCHE-1074725

PATIENT
  Sex: Male

DRUGS (10)
  1. TYLENOL [Concomitant]
  2. ZELBORAF [Suspect]
     Indication: METASTATIC MALIGNANT MELANOMA
     Route: 048
     Dates: start: 20120501, end: 20120613
  3. FUROSEMIDE TEVA [Concomitant]
  4. METFORMIN HYDROCHLORIDE [Concomitant]
  5. CARVEDILOL [Concomitant]
  6. TEVA-AMLODIPINE [Concomitant]
  7. ALTACE [Concomitant]
  8. VIAGRA [Concomitant]
  9. ZELBORAF [Suspect]
     Dosage: THERAPY RESTARTED
  10. CRESTOR [Concomitant]

REACTIONS (6)
  - DEHYDRATION [None]
  - DECREASED APPETITE [None]
  - BLOOD CREATININE INCREASED [None]
  - DYSGEUSIA [None]
  - PARAESTHESIA [None]
  - FATIGUE [None]
